FAERS Safety Report 6813887-X (Version None)
Quarter: 2010Q3

REPORT INFORMATION
  Report Type: 
  Country: None (occurrence: None)
  Receive Date: 20100702
  Receipt Date: 20100622
  Transmission Date: 20110219
  Serious: No
  Sender: FDA-Public Use
  Company Number: 2009BI020899

PATIENT
  Sex: Female

DRUGS (1)
  1. TYSABRI [Suspect]
     Indication: MULTIPLE SCLEROSIS
     Route: 042
     Dates: start: 20090102, end: 20100420

REACTIONS (25)
  - ABASIA [None]
  - ALOPECIA [None]
  - ASTHENIA [None]
  - BLINDNESS [None]
  - BURNING SENSATION [None]
  - DIZZINESS [None]
  - DYSARTHRIA [None]
  - DYSPHAGIA [None]
  - FATIGUE [None]
  - HEADACHE [None]
  - INSOMNIA [None]
  - JOINT SWELLING [None]
  - MEDICAL DEVICE PAIN [None]
  - MENTAL IMPAIRMENT [None]
  - MULTIPLE ALLERGIES [None]
  - MUSCLE SPASMS [None]
  - MUSCLE SPASTICITY [None]
  - MUSCULOSKELETAL STIFFNESS [None]
  - NAUSEA [None]
  - NEURALGIA [None]
  - OEDEMA PERIPHERAL [None]
  - PERONEAL NERVE PALSY [None]
  - RASH [None]
  - VISUAL ACUITY REDUCED [None]
  - WEIGHT DECREASED [None]
